FAERS Safety Report 22083507 (Version 1)
Quarter: 2023Q1

REPORT INFORMATION
  Report Type: Spontaneous
  Country: US (occurrence: None)
  Receive Date: 20230309
  Receipt Date: 20230309
  Transmission Date: 20230418
  Serious: Yes (Other)
  Sender: FDA-Public Use
  Company Number: None

PATIENT
  Age: 74 Year
  Sex: Female
  Weight: 71 kg

DRUGS (1)
  1. CEFUROXIME [Suspect]
     Active Substance: CEFUROXIME
     Dosage: 0.2 ML DAILY INTRAOCULAR ?
     Route: 031

REACTIONS (2)
  - Macular oedema [None]
  - Toxicity to various agents [None]

NARRATIVE: CASE EVENT DATE: 20230301
